FAERS Safety Report 10574853 (Version 1)
Quarter: 2014Q4

REPORT INFORMATION
  Report Type: Spontaneous
  Country: US (occurrence: US)
  Receive Date: 20141110
  Receipt Date: 20141110
  Transmission Date: 20150529
  Serious: Yes (Other)
  Sender: FDA-Public Use
  Company Number: US-JNJCP-30000238237

PATIENT
  Sex: Female
  Weight: 58 kg

DRUGS (1)
  1. NEUTROGENA T/SAL THERAPEUTIC [Suspect]
     Active Substance: SALICYLIC ACID
     Dosage: TABLESPOON AMOUNT FOR TWO TIMES
     Route: 061
     Dates: end: 20140825

REACTIONS (5)
  - Alopecia [None]
  - Product expiration date issue [Unknown]
  - Seborrhoea [Recovered/Resolved]
  - Psoriasis [Recovered/Resolved]
  - Condition aggravated [None]
